FAERS Safety Report 17025423 (Version 1)
Quarter: 2019Q4

REPORT INFORMATION
  Report Type: Report from Study
  Country: US (occurrence: US)
  Receive Date: 20191113
  Receipt Date: 20191113
  Transmission Date: 20200122
  Serious: Yes (Death)
  Sender: FDA-Public Use
  Company Number: US-BAUSCH-BL-2019-008823

PATIENT
  Age: 93 Year
  Sex: Male

DRUGS (3)
  1. XIFAXAN [Suspect]
     Active Substance: RIFAXIMIN
     Indication: AMMONIA INCREASED
     Dosage: LAST WEEK OF FEB/2019.
     Route: 048
     Dates: start: 201902, end: 2019
  2. XIFAXAN [Suspect]
     Active Substance: RIFAXIMIN
     Dosage: RESTARTED
     Route: 048
     Dates: start: 2019, end: 2019
  3. XIFAXAN [Suspect]
     Active Substance: RIFAXIMIN
     Dosage: DOSAGE REDUCED
     Route: 048
     Dates: start: 20190316, end: 2019

REACTIONS (6)
  - Ammonia increased [Not Recovered/Not Resolved]
  - Inappropriate schedule of product administration [Unknown]
  - Intentional product use issue [Unknown]
  - Death [Fatal]
  - Insurance issue [Unknown]
  - Therapy cessation [Unknown]

NARRATIVE: CASE EVENT DATE: 2019
